FAERS Safety Report 13955383 (Version 2)
Quarter: 2017Q3

REPORT INFORMATION
  Report Type: Spontaneous
  Country: IL (occurrence: IL)
  Receive Date: 20170911
  Receipt Date: 20170918
  Transmission Date: 20171128
  Serious: Yes (Other)
  Sender: FDA-Public Use
  Company Number: PHHY2017IL132386

PATIENT
  Age: 70 Year
  Sex: Female

DRUGS (1)
  1. ACLASTA [Suspect]
     Active Substance: ZOLEDRONIC ACID
     Indication: OSTEOPOROSIS
     Dosage: UNK UNK, Q12MO
     Route: 041

REACTIONS (24)
  - Peripheral swelling [Not Recovered/Not Resolved]
  - Chromaturia [Unknown]
  - Eye disorder [Unknown]
  - Rash [Unknown]
  - Pain [Unknown]
  - Peripheral coldness [Unknown]
  - Pharyngeal oedema [Unknown]
  - Myalgia [Unknown]
  - Pain in extremity [Unknown]
  - Creatinine renal clearance decreased [Unknown]
  - Flushing [Unknown]
  - Blood creatinine decreased [Unknown]
  - Inflammation [Unknown]
  - Pyrexia [Recovered/Resolved]
  - Pollakiuria [Unknown]
  - Lacrimation increased [Unknown]
  - Chills [Recovered/Resolved]
  - Ventricular fibrillation [Unknown]
  - Arrhythmia [Unknown]
  - Rhinorrhoea [Unknown]
  - Musculoskeletal stiffness [Unknown]
  - Back pain [Unknown]
  - Sneezing [Unknown]
  - Bone pain [Unknown]
